FAERS Safety Report 24707697 (Version 1)
Quarter: 2024Q4

REPORT INFORMATION
  Report Type: Spontaneous
  Country: US (occurrence: None)
  Receive Date: 20241206
  Receipt Date: 20241206
  Transmission Date: 20250115
  Serious: Yes (Life-Threatening, Hospitalization, Disabling)
  Sender: Public
  Company Number: None

PATIENT
  Sex: Male

DRUGS (1)
  1. ESTRADIOL [Suspect]
     Active Substance: ESTRADIOL

REACTIONS (2)
  - Drug hypersensitivity [None]
  - Suspected product contamination [None]

NARRATIVE: CASE EVENT DATE: 20240923
